FAERS Safety Report 5879812-3 (Version None)
Quarter: 2008Q3

REPORT INFORMATION
  Report Type: 
  Country: None (occurrence: None)
  Receive Date: 20080912
  Receipt Date: 20080905
  Transmission Date: 20090109
  Serious: Yes (Other)
  Sender: FDA-Public Use
  Company Number: US-JNJCH-2008023119

PATIENT
  Age: 70 Year
  Sex: Female

DRUGS (1)
  1. ZYRTEC [Suspect]
     Indication: HYPERSENSITIVITY
     Dosage: TEXT:1 ONE TIME
     Route: 048

REACTIONS (2)
  - PHYSICAL DISABILITY [None]
  - WRONG DRUG ADMINISTERED [None]
